FAERS Safety Report 9907771 (Version 2)
Quarter: 2014Q1

REPORT INFORMATION
  Report Type: Spontaneous
  Country: US (occurrence: US)
  Receive Date: 20140219
  Receipt Date: 20140219
  Transmission Date: 20141002
  Serious: Yes (Disabling)
  Sender: FDA-Public Use
  Company Number: US-GE HEALTHCARE MEDICAL DIAGNOSTICS-OSCN-PR-0805S-0282

PATIENT
  Age: 46 Year
  Sex: Female

DRUGS (5)
  1. OMNISCAN [Suspect]
     Indication: CEREBROVASCULAR ACCIDENT
     Dates: start: 20060627, end: 20060627
  2. OMNISCAN [Suspect]
     Indication: ANEURYSM
     Dates: start: 20060710, end: 20060710
  3. OMNISCAN [Suspect]
     Indication: MITRAL VALVE DISEASE
     Dates: start: 20060711, end: 20060711
  4. OMNISCAN [Suspect]
     Indication: MUSCULAR WEAKNESS
     Dates: start: 20070415, end: 20070415
  5. OMNISCAN [Suspect]
     Indication: HYPOAESTHESIA
     Dates: start: 20070222, end: 20070222

REACTIONS (1)
  - Nephrogenic systemic fibrosis [Not Recovered/Not Resolved]
